FAERS Safety Report 6569204-6 (Version None)
Quarter: 2010Q1

REPORT INFORMATION
  Report Type: 
  Country: None (occurrence: None)
  Receive Date: 20100201
  Receipt Date: 20100201
  Transmission Date: 20100710
  Serious: Yes (Other)
  Sender: FDA-Public Use
  Company Number: None

PATIENT
  Age: 25 Year
  Weight: 52 kg

DRUGS (1)
  1. GYNODAKTARIN CREAM 20MG PER G JANSSEN PHARMACEUTICAL [Suspect]
     Indication: VULVOVAGINAL CANDIDIASIS
     Dosage: ABOUT 0.5 GM ONCE VAG
     Route: 067
     Dates: start: 20100127, end: 20100127

REACTIONS (2)
  - EXCORIATION [None]
  - VAGINAL DISORDER [None]
